FAERS Safety Report 9164150 (Version 1)
Quarter: 2013Q1

REPORT INFORMATION
  Report Type: Spontaneous
  Country: FR (occurrence: FR)
  Receive Date: 20130315
  Receipt Date: 20130315
  Transmission Date: 20140127
  Serious: Yes (Hospitalization)
  Sender: FDA-Public Use
  Company Number: FR-GE HEALTHCARE MEDICAL DIAGNOSTICS-OMPQ-NO-1303S-0309

PATIENT
  Age: 71 Year
  Sex: Male

DRUGS (7)
  1. OMNIPAQUE [Suspect]
     Indication: PRODUCT USED FOR UNKNOWN INDICATION
     Dosage: DOSE NOT REPORTED
     Route: 042
     Dates: start: 20121207, end: 20121207
  2. OMNIPAQUE [Suspect]
     Indication: DIAGNOSTIC PROCEDURE
  3. ARANESP [Concomitant]
  4. LERCAN [Concomitant]
  5. UNALPHA [Concomitant]
  6. BIPERIDYS [Concomitant]
  7. DEBRIDAT [Concomitant]

REACTIONS (2)
  - Renal failure chronic [Recovered/Resolved]
  - Renal failure acute [Recovered/Resolved]
